FAERS Safety Report 12971149 (Version 2)
Quarter: 2016Q4

REPORT INFORMATION
  Report Type: Spontaneous
  Country: US (occurrence: US)
  Receive Date: 20161123
  Receipt Date: 20161128
  Transmission Date: 20170207
  Serious: No
  Sender: FDA-Public Use
  Company Number: US-JAZZ-2016-US-019253

PATIENT
  Sex: Female

DRUGS (34)
  1. PROMETRIUM [Concomitant]
     Active Substance: PROGESTERONE
  2. PROVIGIL [Concomitant]
     Active Substance: MODAFINIL
  3. REQUIP [Concomitant]
     Active Substance: ROPINIROLE HYDROCHLORIDE
  4. DEPAKOTE [Concomitant]
     Active Substance: DIVALPROEX SODIUM
  5. CLONAZEPAM. [Concomitant]
     Active Substance: CLONAZEPAM
  6. CYMBALTA [Concomitant]
     Active Substance: DULOXETINE HYDROCHLORIDE
  7. LOTREL                             /01388302/ [Concomitant]
     Active Substance: LOTEPREDNOL ETABONATE
  8. LOSARTAN POTASSIUM. [Concomitant]
     Active Substance: LOSARTAN POTASSIUM
  9. VITAMIN D3 [Concomitant]
     Active Substance: CHOLECALCIFEROL
  10. FEMRING [Concomitant]
     Active Substance: ESTRADIOL ACETATE
  11. LAMICTAL [Concomitant]
     Active Substance: LAMOTRIGINE
  12. LORAZEPAM. [Concomitant]
     Active Substance: LORAZEPAM
  13. TOPROL XL [Concomitant]
     Active Substance: METOPROLOL SUCCINATE
  14. XYREM [Suspect]
     Active Substance: SODIUM OXYBATE
     Indication: NARCOLEPSY
     Dosage: 2.25 G, BID
     Route: 048
     Dates: start: 200705, end: 200707
  15. XYREM [Suspect]
     Active Substance: SODIUM OXYBATE
     Dosage: 2.25 G, BID
     Route: 048
     Dates: start: 201203, end: 201203
  16. GABAPENTIN. [Concomitant]
     Active Substance: GABAPENTIN
  17. ZOLOFT [Concomitant]
     Active Substance: SERTRALINE HYDROCHLORIDE
  18. CLORAZEPATE [Concomitant]
     Active Substance: CLORAZEPATE DIPOTASSIUM
  19. ACIPHEX [Concomitant]
     Active Substance: RABEPRAZOLE SODIUM
  20. XYREM [Suspect]
     Active Substance: SODIUM OXYBATE
     Dosage: 3 G, BID
     Route: 048
     Dates: start: 201203, end: 201205
  21. XYREM [Suspect]
     Active Substance: SODIUM OXYBATE
     Dosage: 4.5 G, BID
     Route: 048
     Dates: start: 201205, end: 2014
  22. IPRATROPIUM [Concomitant]
     Active Substance: IPRATROPIUM
  23. RESTASIS [Concomitant]
     Active Substance: CYCLOSPORINE
  24. XYREM [Suspect]
     Active Substance: SODIUM OXYBATE
     Dosage: 3 G, BID
     Route: 048
     Dates: start: 201011, end: 2011
  25. REXULTI [Concomitant]
     Active Substance: BREXPIPRAZOLE
  26. METOPROLOL. [Concomitant]
     Active Substance: METOPROLOL
  27. EDLUAR [Concomitant]
     Active Substance: ZOLPIDEM TARTRATE
  28. XYREM [Suspect]
     Active Substance: SODIUM OXYBATE
     Dosage: DOSE ADJUSTMENTS
     Route: 048
     Dates: start: 200707, end: 201011
  29. SANCTURA [Concomitant]
     Active Substance: TROSPIUM CHLORIDE
  30. OMEPRAZOLE. [Concomitant]
     Active Substance: OMEPRAZOLE
  31. ALPRAZOLAM. [Concomitant]
     Active Substance: ALPRAZOLAM
  32. ABILIFY [Concomitant]
     Active Substance: ARIPIPRAZOLE
  33. MULTIVITAMINS                      /00116001/ [Concomitant]
  34. PIROXICAM. [Concomitant]
     Active Substance: PIROXICAM

REACTIONS (2)
  - Memory impairment [Unknown]
  - Vitamin D decreased [Unknown]
